FAERS Safety Report 8606909-7 (Version None)
Quarter: 2012Q3

REPORT INFORMATION
  Report Type: 
  Country: None (occurrence: None)
  Receive Date: 20120820
  Receipt Date: 20120810
  Transmission Date: 20120928
  Serious: Yes (Hospitalization, Other)
  Sender: FDA-Public Use
  Company Number: US-BAXTER-2012BAX012593

PATIENT
  Sex: Male
  Weight: 90 kg

DRUGS (11)
  1. SODIUM CHLORIDE INJ [Suspect]
     Route: 042
     Dates: start: 20120721, end: 20120721
  2. ZOSYN [Concomitant]
     Indication: ANTIBIOTIC THERAPY
     Route: 042
     Dates: start: 20120718, end: 20120723
  3. SODIUM CHLORIDE INJ [Suspect]
     Indication: HYDROCEPHALUS
     Route: 042
     Dates: start: 20120717, end: 20120718
  4. NORCO [Concomitant]
     Indication: PAIN
     Dosage: 10/325 MG
     Route: 048
     Dates: start: 20120717, end: 20120723
  5. NIMODIPINE [Concomitant]
     Indication: VASOSPASM
     Route: 048
     Dates: start: 20120708, end: 20120723
  6. SODIUM CHLORIDE INJ [Suspect]
     Route: 042
     Dates: start: 20120719, end: 20120720
  7. FLUDROCORTISONE ACETATE [Concomitant]
     Route: 048
     Dates: start: 20120717, end: 20120723
  8. SODIUM CHLORIDE INJ [Suspect]
     Route: 042
     Dates: start: 20120722, end: 20120722
  9. SODIUM CHLORIDE INJ [Suspect]
     Route: 042
     Dates: start: 20120723
  10. VANCOMYCIN [Concomitant]
     Indication: ANTIBIOTIC THERAPY
     Route: 042
     Dates: start: 20120718, end: 20120723
  11. SODIUM CHLORIDE INJ [Suspect]
     Dosage: 60-90ML/HR
     Route: 042
     Dates: start: 20120716, end: 20120716

REACTIONS (1)
  - DRUG INEFFECTIVE [None]
